FAERS Safety Report 8957369 (Version 2)
Quarter: 2015Q1

REPORT INFORMATION
  Report Type: Report from Study
  Country: FR (occurrence: FR)
  Receive Date: 20121210
  Receipt Date: 20150210
  Transmission Date: 20150721
  Serious: Yes (Death, Hospitalization)
  Sender: FDA-Public Use
  Company Number: FR-ROCHE-1164927

PATIENT
  Age: 68 Year
  Sex: Male

DRUGS (11)
  1. RITUXIMAB [Suspect]
     Active Substance: RITUXIMAB
     Dosage: D15
     Route: 042
     Dates: start: 20061130
  2. CORTANCYL [Concomitant]
     Active Substance: PREDNISONE
     Route: 065
     Dates: start: 20100203
  3. RITUXIMAB [Suspect]
     Active Substance: RITUXIMAB
     Dosage: D15
     Route: 042
     Dates: start: 20070705
  4. RITUXIMAB [Suspect]
     Active Substance: RITUXIMAB
     Dosage: D1
     Route: 042
     Dates: start: 20070621
  5. SALAZOPYRINE [Concomitant]
     Active Substance: SULFASALAZINE
     Route: 065
     Dates: start: 20090709
  6. RITUXIMAB [Suspect]
     Active Substance: RITUXIMAB
     Indication: RHEUMATOID ARTHRITIS
     Dosage: D1
     Route: 042
     Dates: start: 20061116
  7. CORTANCYL [Concomitant]
     Active Substance: PREDNISONE
     Route: 065
     Dates: start: 20070705
  8. RITUXIMAB [Suspect]
     Active Substance: RITUXIMAB
     Dosage: D1
     Route: 042
     Dates: start: 20080702
  9. RITUXIMAB [Suspect]
     Active Substance: RITUXIMAB
     Dosage: D15
     Route: 042
     Dates: start: 20080715
  10. CORTANCYL [Concomitant]
     Active Substance: PREDNISONE
     Route: 065
     Dates: start: 20061130
  11. CORTANCYL [Concomitant]
     Active Substance: PREDNISONE
     Route: 065
     Dates: start: 20080715

REACTIONS (8)
  - Hypertension [Unknown]
  - Pulmonary fibrosis [Fatal]
  - Beta haemolytic streptococcal infection [Recovered/Resolved]
  - Septic arthritis staphylococcal [Recovered/Resolved]
  - Respiratory failure [Fatal]
  - Perforated ulcer [Recovered/Resolved]
  - Bursitis infective [Recovered/Resolved]
  - Dyspnoea [Recovered/Resolved]

NARRATIVE: CASE EVENT DATE: 200705
